FAERS Safety Report 14920554 (Version 1)
Quarter: 2018Q2

REPORT INFORMATION
  Report Type: Spontaneous
  Country: ES (occurrence: ES)
  Receive Date: 20180521
  Receipt Date: 20180521
  Transmission Date: 20180711
  Serious: Yes (Other)
  Sender: FDA-Public Use
  Company Number: ES-SHIRE-ES201818981

PATIENT

DRUGS (5)
  1. ALBUMINA HUMANA [Suspect]
     Active Substance: ALBUMIN HUMAN
     Indication: ANURIA
     Route: 042
  2. CYCLOSPORINE. [Concomitant]
     Active Substance: CYCLOSPORINE
     Indication: NEPHROTIC SYNDROME
  3. ALBUMINA HUMANA [Suspect]
     Active Substance: ALBUMIN HUMAN
     Indication: OEDEMA
  4. CYCLOPHOSPHAMIDE. [Concomitant]
     Active Substance: CYCLOPHOSPHAMIDE
     Indication: NEPHROTIC SYNDROME
  5. MYCOPHENOLATE [Concomitant]
     Active Substance: MYCOPHENOLIC ACID
     Indication: NEPHROTIC SYNDROME

REACTIONS (1)
  - Drug ineffective [Unknown]
